FAERS Safety Report 11282553 (Version 1)
Quarter: 2015Q3

REPORT INFORMATION
  Report Type: Spontaneous
  Country: US (occurrence: None)
  Receive Date: 20150716
  Receipt Date: 20150716
  Transmission Date: 20151125
  Serious: Yes (Life-Threatening)
  Sender: FDA-Public Use
  Company Number: None

PATIENT
  Age: 61 Year
  Sex: Female
  Weight: 45 kg

DRUGS (4)
  1. OLANZAPINE 10MG [Suspect]
     Active Substance: OLANZAPINE
     Indication: VOMITING
  2. OLANZAPINE 10MG [Suspect]
     Active Substance: OLANZAPINE
     Indication: NAUSEA
  3. LORAZEPAM. [Suspect]
     Active Substance: LORAZEPAM
     Indication: VOMITING
  4. LORAZEPAM. [Suspect]
     Active Substance: LORAZEPAM
     Indication: NAUSEA

REACTIONS (8)
  - Respiratory rate decreased [None]
  - Hypotension [None]
  - Drug interaction [None]
  - Nausea [None]
  - Stupor [None]
  - Blood pressure systolic decreased [None]
  - Toxicity to various agents [None]
  - Vomiting [None]

NARRATIVE: CASE EVENT DATE: 20150528
